FAERS Safety Report 21303837 (Version 1)
Quarter: 2022Q3

REPORT INFORMATION
  Report Type: Spontaneous
  Country: US (occurrence: US)
  Receive Date: 20220907
  Receipt Date: 20220907
  Transmission Date: 20221026
  Serious: No
  Sender: FDA-Public Use
  Company Number: US-NOVARTISTESTPH-NVSC2022US201963

PATIENT
  Sex: Female

DRUGS (1)
  1. VOLTAREN [Suspect]
     Active Substance: DICLOFENAC SODIUM
     Indication: Osteoarthritis
     Dosage: UNK
     Route: 065

REACTIONS (2)
  - Product administered at inappropriate site [Unknown]
  - Drug effective for unapproved indication [Unknown]
